FAERS Safety Report 6674100-X (Version None)
Quarter: 2010Q1

REPORT INFORMATION
  Report Type: 
  Country: None (occurrence: None)
  Receive Date: 20100329
  Receipt Date: 20100203
  Transmission Date: 20100710
  Serious: Yes (Other)
  Sender: FDA-Public Use
  Company Number: 2010017000

PATIENT
  Sex: Female

DRUGS (4)
  1. GEODON [Suspect]
     Indication: BIPOLAR DISORDER
  2. LITHIUM CARBONATE [Concomitant]
  3. PROPRANOLOL [Concomitant]
  4. SEROQUEL [Concomitant]

REACTIONS (3)
  - MUSCLE TWITCHING [None]
  - TONGUE DISORDER [None]
  - TRISMUS [None]
